FAERS Safety Report 9206794 (Version 1)
Quarter: 2013Q1

REPORT INFORMATION
  Report Type: Spontaneous
  Country: US (occurrence: None)
  Receive Date: 20120713
  Receipt Date: 20120713
  Transmission Date: 20140127
  Serious: No
  Sender: FDA-Public Use
  Company Number: PHEH2012US010932

PATIENT
  Sex: Female

DRUGS (1)
  1. ILARIS [Suspect]

REACTIONS (1)
  - Headache [None]
